FAERS Safety Report 21489788 (Version 1)
Quarter: 2022Q4

REPORT INFORMATION
  Report Type: Spontaneous
  Country: US (occurrence: US)
  Receive Date: 20221021
  Receipt Date: 20221021
  Transmission Date: 20230112
  Serious: No
  Sender: FDA-Public Use
  Company Number: US-CELLTRION INC.-2022US013777

PATIENT

DRUGS (6)
  1. INFLIXIMAB [Suspect]
     Active Substance: INFLIXIMAB
     Indication: Chronic recurrent multifocal osteomyelitis
     Dosage: TRANSITIONED TO INFLIXIMAB
  2. INFLIXIMAB [Suspect]
     Active Substance: INFLIXIMAB
     Indication: Psoriasis
  3. METHOTREXATE [Suspect]
     Active Substance: METHOTREXATE
     Indication: Chronic recurrent multifocal osteomyelitis
  4. GOLIMUMAB [Suspect]
     Active Substance: GOLIMUMAB
     Indication: Chronic recurrent multifocal osteomyelitis
  5. ADALIMUMAB [Suspect]
     Active Substance: ADALIMUMAB
     Indication: Chronic recurrent multifocal osteomyelitis
  6. USTEKINUMAB [Suspect]
     Active Substance: USTEKINUMAB
     Indication: Chronic recurrent multifocal osteomyelitis

REACTIONS (4)
  - Psoriasis [Recovered/Resolved]
  - Drug effective for unapproved indication [Unknown]
  - Off label use [Unknown]
  - Off label use [Unknown]
